FAERS Safety Report 4812097-5 (Version None)
Quarter: 2005Q4

REPORT INFORMATION
  Report Type: 
  Country: None (occurrence: None)
  Receive Date: 20051028
  Receipt Date: 20030714
  Transmission Date: 20060501
  Serious: No
  Sender: FDA-Public Use
  Company Number: US-GLAXOSMITHKLINE-A0417194A

PATIENT
  Age: 10 Year
  Sex: Female

DRUGS (3)
  1. ADVAIR DISKUS 100/50 [Suspect]
     Indication: ASTHMA
     Dosage: 1PUFF TWICE PER DAY
     Route: 055
     Dates: start: 20030523, end: 20030528
  2. ZYRTEC [Concomitant]
  3. ALBUTEROL [Concomitant]

REACTIONS (3)
  - ABDOMINAL PAIN UPPER [None]
  - HEADACHE [None]
  - HYPERSENSITIVITY [None]
